FAERS Safety Report 5213040-X (Version None)
Quarter: 2007Q1

REPORT INFORMATION
  Report Type: 
  Country: None (occurrence: None)
  Receive Date: 20070117
  Receipt Date: 20070117
  Transmission Date: 20070707
  Serious: Yes (Life-Threatening, Hospitalization)
  Sender: FDA-Public Use
  Company Number: None

PATIENT
  Age: 23 Year
  Sex: Male

DRUGS (8)
  1. HALOPERIDOL [Suspect]
     Dosage: 10 MG X1 IV BOLUS
     Route: 042
     Dates: start: 20070108, end: 20070108
  2. DALREPARIN [Concomitant]
  3. OXYMETAZOLIN NASAL SPRAY [Concomitant]
  4. SENOKOT [Concomitant]
  5. D5LR MAINTENACE [Concomitant]
  6. SS INSULIN [Concomitant]
  7. CEFEPIME [Concomitant]
  8. PANTOPRAZOLE SODIUM [Concomitant]

REACTIONS (1)
  - NEUROLEPTIC MALIGNANT SYNDROME [None]
